FAERS Safety Report 23334280 (Version 1)
Quarter: 2023Q4

REPORT INFORMATION
  Report Type: Spontaneous
  Country: CN (occurrence: CN)
  Receive Date: 20231223
  Receipt Date: 20231223
  Transmission Date: 20240110
  Serious: Yes (Death)
  Sender: FDA-Public Use
  Company Number: CN-AMGEN-CHNSP2023225153

PATIENT

DRUGS (1)
  1. XGEVA [Suspect]
     Active Substance: DENOSUMAB
     Indication: Benign bone neoplasm
     Dosage: UNK
     Route: 065

REACTIONS (2)
  - Bone neoplasm [Fatal]
  - Pulmonary embolism [Fatal]
